FAERS Safety Report 4974897-0 (Version None)
Quarter: 2006Q1

REPORT INFORMATION
  Report Type: 
  Country: None (occurrence: None)
  Receive Date: 20060227
  Receipt Date: 20051031
  Transmission Date: 20060701
  Serious: No
  Sender: FDA-Public Use
  Company Number: PHEH2005US12052

PATIENT
  Age: 80 Year
  Sex: Female

DRUGS (6)
  1. ENABLEX [Suspect]
     Indication: HYPERTONIC BLADDER
     Dosage: 7.5 MG QD
     Dates: start: 20051025
  2. PREMARIN [Concomitant]
  3. CALCIUM (CALCIUM) [Concomitant]
  4. POTASSIUM (POTASSIUM) [Concomitant]
  5. VITAMIN (NO INGREDIENTS/SUBSTANCES) [Concomitant]
  6. HYDROCHLOROTHIAZIDE [Concomitant]

REACTIONS (1)
  - DRY MOUTH [None]
